FAERS Safety Report 14534171 (Version 1)
Quarter: 2018Q1

REPORT INFORMATION
  Report Type: Spontaneous
  Country: JP (occurrence: JP)
  Receive Date: 20180215
  Receipt Date: 20180215
  Transmission Date: 20180509
  Serious: Yes (Other)
  Sender: FDA-Public Use
  Company Number: JP-AMGEN-JPNSP2018021202

PATIENT
  Age: 10 Decade
  Sex: Male

DRUGS (1)
  1. NESP [Suspect]
     Active Substance: DARBEPOETIN ALFA
     Indication: PRODUCT USED FOR UNKNOWN INDICATION
     Dosage: 120 MUG, QWK
     Route: 058
     Dates: start: 2017

REACTIONS (2)
  - Haemorrhage subcutaneous [Unknown]
  - Puncture site pain [Unknown]

NARRATIVE: CASE EVENT DATE: 20170127
